FAERS Safety Report 18617990 (Version 2)
Quarter: 2021Q2

REPORT INFORMATION
  Report Type: Report from Study
  Country: CA (occurrence: CA)
  Receive Date: 20201215
  Receipt Date: 20210607
  Transmission Date: 20210717
  Serious: Yes (Hospitalization, Other)
  Sender: FDA-Public Use
  Company Number: CA-BAYER-2020-268465

PATIENT
  Sex: Female

DRUGS (12)
  1. PENICILLIN G COMP [Suspect]
     Active Substance: PENICILLIN G
  2. SPIRIVA [Suspect]
     Active Substance: TIOTROPIUM BROMIDE MONOHYDRATE
     Indication: PRODUCT USED FOR UNKNOWN INDICATION
     Route: 065
  3. BUDESONIDE;FORMOTEROL FUMARATE [Suspect]
     Active Substance: BUDESONIDE\FORMOTEROL FUMARATE
     Indication: PRODUCT USED FOR UNKNOWN INDICATION
  4. BREO ELLIPTA [Suspect]
     Active Substance: FLUTICASONE FUROATE\VILANTEROL TRIFENATATE
     Indication: DYSPHONIA
     Dosage: UNK
     Route: 065
  5. RANITIDINE. [Suspect]
     Active Substance: RANITIDINE
     Indication: PRODUCT USED FOR UNKNOWN INDICATION
  6. ATROVENT [Suspect]
     Active Substance: IPRATROPIUM BROMIDE
     Indication: PRODUCT USED FOR UNKNOWN INDICATION
     Route: 065
  7. SYMBICORT [Suspect]
     Active Substance: BUDESONIDE\FORMOTEROL FUMARATE DIHYDRATE
  8. CEFUROXIME AXETIL. [Suspect]
     Active Substance: CEFUROXIME AXETIL
  9. BREO ELLIPTA [Suspect]
     Active Substance: FLUTICASONE FUROATE\VILANTEROL TRIFENATATE
     Indication: RESPIRATION ABNORMAL
     Dosage: UNK
     Route: 065
  10. NAPROXEN. [Suspect]
     Active Substance: NAPROXEN
     Indication: PRODUCT USED FOR UNKNOWN INDICATION
  11. SALBUTAMOL SULFATE [Suspect]
     Active Substance: ALBUTEROL SULFATE
  12. BREO ELLIPTA [Suspect]
     Active Substance: FLUTICASONE FUROATE\VILANTEROL TRIFENATATE
     Indication: DUODENOGASTRIC REFLUX
     Dosage: UNK
     Route: 065

REACTIONS (16)
  - Dyspnoea [None]
  - Hypersensitivity [None]
  - Gastrooesophageal reflux disease [Unknown]
  - Wheezing [Unknown]
  - Blood count abnormal [None]
  - Sleep disorder due to a general medical condition [None]
  - Respiration abnormal [Unknown]
  - Therapeutic product effect incomplete [Unknown]
  - Fibromyalgia [None]
  - Cough [Unknown]
  - Asthma [None]
  - Oxygen saturation abnormal [None]
  - Bronchial hyperreactivity [Unknown]
  - Dysphonia [Unknown]
  - Adverse drug reaction [None]
  - Loss of personal independence in daily activities [None]
